FAERS Safety Report 12247013 (Version 1)
Quarter: 2016Q2

REPORT INFORMATION
  Report Type: Spontaneous
  Country: US (occurrence: US)
  Receive Date: 20160407
  Receipt Date: 20160407
  Transmission Date: 20160815
  Serious: No
  Sender: FDA-Public Use
  Company Number: US-009507513-1603USA013505

PATIENT
  Sex: Female
  Weight: 59.42 kg

DRUGS (7)
  1. ZOCOR [Suspect]
     Active Substance: SIMVASTATIN
     Indication: BLOOD CHOLESTEROL INCREASED
     Dosage: 20 MG, QD
     Route: 048
  2. PERCOCET [Concomitant]
     Active Substance: ACETAMINOPHEN\OXYCODONE HYDROCHLORIDE
     Indication: NECK PAIN
  3. MELOXICAM. [Suspect]
     Active Substance: MELOXICAM
     Indication: JOINT SWELLING
     Dosage: 15 MG, QD
     Route: 048
  4. ESTRADIOL. [Suspect]
     Active Substance: ESTRADIOL
     Indication: HOT FLUSH
  5. ESTRADIOL. [Suspect]
     Active Substance: ESTRADIOL
     Indication: NIGHT SWEATS
  6. PERCOCET [Concomitant]
     Active Substance: ACETAMINOPHEN\OXYCODONE HYDROCHLORIDE
     Indication: BACK PAIN
     Dosage: 6 DF, QD
  7. ESTRADIOL. [Suspect]
     Active Substance: ESTRADIOL
     Indication: IRRITABILITY
     Dosage: 2 MG, QD
     Route: 048

REACTIONS (6)
  - Irritability [Unknown]
  - Drug ineffective [Unknown]
  - Drug dose omission [Unknown]
  - Hot flush [Unknown]
  - Blood cholesterol increased [Unknown]
  - Night sweats [Unknown]
